FAERS Safety Report 13403423 (Version 1)
Quarter: 2017Q2

REPORT INFORMATION
  Report Type: Spontaneous
  Country: US (occurrence: US)
  Receive Date: 20170404
  Receipt Date: 20170404
  Transmission Date: 20170830
  Serious: No
  Sender: FDA-Public Use
  Company Number: None

PATIENT
  Age: 13 Year
  Sex: Female
  Weight: 45.9 kg

DRUGS (1)
  1. MIRALAX [Suspect]
     Active Substance: POLYETHYLENE GLYCOL 3350
     Indication: CONSTIPATION
     Dosage: 2 CAPFULS TWICE A DAY ORAL
     Route: 048
     Dates: start: 20050101, end: 20150101

REACTIONS (8)
  - Learning disability [None]
  - Antisocial behaviour [None]
  - Obsessive-compulsive disorder [None]
  - Affective disorder [None]
  - Hallucination, auditory [None]
  - Schizophrenia [None]
  - Fear of death [None]
  - Anxiety [None]

NARRATIVE: CASE EVENT DATE: 20141212
